FAERS Safety Report 8322996-8 (Version None)
Quarter: 2012Q2

REPORT INFORMATION
  Report Type: 
  Country: None (occurrence: None)
  Receive Date: 20120430
  Receipt Date: 20120430
  Transmission Date: 20120825
  Serious: Yes (Hospitalization)
  Sender: FDA-Public Use
  Company Number: FR-PFIZER INC-2012089831

PATIENT
  Age: 68 Year
  Sex: Female
  Weight: 60 kg

DRUGS (11)
  1. LYRICA [Suspect]
     Dosage: 25 MG, 2X/DAY
     Route: 048
     Dates: start: 20120117
  2. LOVENOX [Concomitant]
  3. PERINDOPRIL ERBUMINE [Concomitant]
     Dosage: UNK
  4. ACUPAN [Concomitant]
     Dosage: UNK
     Dates: start: 20120224, end: 20120225
  5. TERIPARATIDE [Concomitant]
     Dosage: UNK
     Dates: start: 20120101
  6. AMLODIPINE [Concomitant]
     Dosage: UNK
  7. ACETAMINOPHEN AND TRAMADOL HCL [Suspect]
     Dosage: 2 DF, 3X/DAY
     Route: 048
     Dates: end: 20120223
  8. TERIPARATIDE [Concomitant]
     Dosage: UNK
     Route: 058
     Dates: start: 20100101
  9. LYRICA [Suspect]
     Dosage: 150 MG, 2X/DAY
     Dates: end: 20120223
  10. CRESTOR [Concomitant]
     Dosage: 5 UNK, UNK
  11. LYRICA [Suspect]
     Dosage: 50 MG, WEEKLY

REACTIONS (5)
  - C-REACTIVE PROTEIN INCREASED [None]
  - PAIN [None]
  - CHOLESTASIS [None]
  - LIVER FUNCTION TEST ABNORMAL [None]
  - EXTRAPYRAMIDAL DISORDER [None]
